FAERS Safety Report 11388537 (Version 2)
Quarter: 2016Q3

REPORT INFORMATION
  Report Type: Spontaneous
  Country: DK (occurrence: DK)
  Receive Date: 20150817
  Receipt Date: 20160805
  Transmission Date: 20161109
  Serious: Yes (Other)
  Sender: FDA-Public Use
  Company Number: PHHY2015DK098437

PATIENT
  Age: 54 Year
  Sex: Female
  Weight: 84 kg

DRUGS (1)
  1. ZOMETA [Suspect]
     Active Substance: ZOLEDRONIC ACID
     Indication: METASTASES TO BONE
     Dosage: 4 MG, UNK
     Route: 042
     Dates: start: 20121231, end: 20150611

REACTIONS (4)
  - Exposed bone in jaw [Unknown]
  - Jaw operation [Unknown]
  - Osteonecrosis of jaw [Not Recovered/Not Resolved]
  - Pain [Unknown]

NARRATIVE: CASE EVENT DATE: 20150602
